FAERS Safety Report 21088708 (Version 2)
Quarter: 2022Q3

REPORT INFORMATION
  Report Type: Spontaneous
  Country: US (occurrence: US)
  Receive Date: 20220715
  Receipt Date: 20220729
  Transmission Date: 20221027
  Serious: Yes (Life-Threatening, Hospitalization, Other)
  Sender: FDA-Public Use
  Company Number: US-drreddys-SPO/USA/22/0152176

PATIENT
  Age: 22 Year
  Sex: Female

DRUGS (3)
  1. HEPARIN SODIUM [Suspect]
     Active Substance: HEPARIN SODIUM
     Indication: Cerebral venous sinus thrombosis
  2. LEVETIRACETAM [Concomitant]
     Active Substance: LEVETIRACETAM
     Indication: Seizure prophylaxis
  3. MANNITOL [Concomitant]
     Active Substance: MANNITOL
     Indication: Intracranial pressure increased

REACTIONS (3)
  - Cerebral venous sinus thrombosis [Recovering/Resolving]
  - Condition aggravated [Recovering/Resolving]
  - Heparin-induced thrombocytopenia [Recovering/Resolving]
